FAERS Safety Report 14605289 (Version 1)
Quarter: 2018Q1

REPORT INFORMATION
  Report Type: Spontaneous
  Country: DE (occurrence: DE)
  Receive Date: 20180306
  Receipt Date: 20180306
  Transmission Date: 20180509
  Serious: Yes (Hospitalization, Other)
  Sender: FDA-Public Use
  Company Number: DE-SA-2018SA056548

PATIENT
  Age: 49 Year
  Sex: Female

DRUGS (6)
  1. CLEXANE [Suspect]
     Active Substance: ENOXAPARIN SODIUM
     Route: 048
     Dates: start: 20150620
  2. CLOZAPINE. [Concomitant]
     Active Substance: CLOZAPINE
  3. GASTROZEPIN [Concomitant]
     Active Substance: PIRENZEPINE HYDROCHLORIDE
  4. DOMINAL (PROTHIPENDYL HYDROCHLORIDE) [Suspect]
     Active Substance: PROTHIPENDYL HYDROCHLORIDE
     Route: 048
     Dates: start: 20150624, end: 20150709
  5. ABILIFY [Suspect]
     Active Substance: ARIPIPRAZOLE
     Route: 048
     Dates: start: 20150630, end: 20150703
  6. HALOPERIDOL. [Suspect]
     Active Substance: HALOPERIDOL
     Route: 048
     Dates: start: 20150619, end: 20150624

REACTIONS (3)
  - Dysphagia [Recovered/Resolved]
  - Dysarthria [Unknown]
  - Saliva altered [Unknown]
